FAERS Safety Report 10211397 (Version 3)
Quarter: 2014Q2

REPORT INFORMATION
  Report Type: Report from Study
  Country: AU (occurrence: AU)
  Receive Date: 20140602
  Receipt Date: 20140624
  Transmission Date: 20141212
  Serious: Yes (Death, Hospitalization, Other)
  Sender: FDA-Public Use
  Company Number: AU-INCYTE CORPORATION-2014IN000924

PATIENT
  Age: 71 Year
  Sex: Male

DRUGS (6)
  1. JAKAVI [Suspect]
     Indication: MYELOFIBROSIS
     Dosage: 15 MG, BID
     Route: 048
  2. JAKAVI [Suspect]
     Dosage: 5 MG, BID
     Route: 065
  3. JAKAVI [Suspect]
     Dosage: 15 MG, BID
     Route: 048
     Dates: start: 20140306, end: 20140331
  4. MS CONTIN [Concomitant]
     Dosage: 10 MG, BID
     Route: 048
  5. OMEPRAZOLE [Concomitant]
     Dosage: 20 MG, QD
     Route: 048
  6. ACETAMINOPHEN [Concomitant]
     Dosage: UNK UKN, UNK

REACTIONS (12)
  - Jaundice cholestatic [Fatal]
  - Acute myeloid leukaemia [Fatal]
  - Nausea [Unknown]
  - Ascites [Unknown]
  - Abdominal pain [Unknown]
  - Pyrexia [Unknown]
  - Fatigue [Unknown]
  - Hepatosplenomegaly [Unknown]
  - Portal vein dilatation [Unknown]
  - Polychromasia [Unknown]
  - Anisocytosis [Unknown]
  - Thrombocytopenia [Unknown]
